FAERS Safety Report 4265877-1 (Version None)
Quarter: 2004Q1

REPORT INFORMATION
  Report Type: 
  Country: None (occurrence: None)
  Receive Date: 20040107
  Receipt Date: 20040107
  Transmission Date: 20041129
  Serious: Yes (Other)
  Sender: FDA-Public Use
  Company Number: None

PATIENT
  Age: 48 Year
  Sex: Female
  Weight: 46.2669 kg

DRUGS (19)
  1. GAMMAR-P I.V. [Suspect]
     Indication: IMMUNODEFICIENCY COMMON VARIABLE
     Dosage: 40 GM  Q 4WEEKS  INTRAVENOUS
     Route: 042
     Dates: start: 20030918, end: 20031210
  2. KLONIPIN [Concomitant]
  3. PREDNISONE [Concomitant]
  4. ALLEGRA [Concomitant]
  5. FERROUS SULFATE TAB [Concomitant]
  6. LEVBID [Concomitant]
  7. NAPROSYN [Concomitant]
  8. VICODIN [Concomitant]
  9. K-DUR 10 [Concomitant]
  10. LIBRAX [Concomitant]
  11. DURAGESIC [Concomitant]
  12. LASIX [Concomitant]
  13. SINGULAIR [Concomitant]
  14. PREVACID [Concomitant]
  15. ZOLOFT [Concomitant]
  16. PREMARIN [Concomitant]
  17. ZYRTEC [Concomitant]
  18. FLEXERIL [Concomitant]
  19. VANAX [Concomitant]

REACTIONS (1)
  - MEDICATION ERROR [None]
